FAERS Safety Report 6040741-6 (Version None)
Quarter: 2009Q1

REPORT INFORMATION
  Report Type: 
  Country: None (occurrence: None)
  Receive Date: 20090116
  Receipt Date: 20080515
  Transmission Date: 20090719
  Serious: No
  Sender: FDA-Public Use
  Company Number: US-BRISTOL-MYERS SQUIBB COMPANY-14193460

PATIENT
  Age: 69 Year
  Sex: Female
  Weight: 80 kg

DRUGS (2)
  1. ABILIFY [Suspect]
     Indication: DEPRESSION
     Dosage: TOOK 5MG FOR 30 DAY, DECREASED TO 2.5MG AND FINALLY STOPPED
     Dates: end: 20080501
  2. GABAPENTIN [Concomitant]

REACTIONS (1)
  - CONFUSIONAL STATE [None]
